FAERS Safety Report 5865860-6 (Version None)
Quarter: 2008Q3

REPORT INFORMATION
  Report Type: 
  Country: None (occurrence: None)
  Receive Date: 20080829
  Receipt Date: 20071116
  Transmission Date: 20090109
  Serious: No
  Sender: FDA-Public Use
  Company Number: US-BRISTOL-MYERS SQUIBB COMPANY-13874961

PATIENT
  Sex: Female
  Weight: 83 kg

DRUGS (3)
  1. STADOL [Suspect]
     Indication: PAIN
     Route: 042
     Dates: start: 20070302
  2. VITAMIN TAB [Concomitant]
  3. PITOCIN [Concomitant]

REACTIONS (16)
  - ABSCESS ORAL [None]
  - BLOOD PRESSURE INCREASED [None]
  - DEAFNESS [None]
  - DIZZINESS [None]
  - FEELING HOT [None]
  - GINGIVAL INFECTION [None]
  - HEADACHE [None]
  - HEART RATE INCREASED [None]
  - INFUSION SITE SWELLING [None]
  - NAUSEA [None]
  - PRESYNCOPE [None]
  - SINUSITIS [None]
  - TINNITUS [None]
  - TONSILLITIS [None]
  - UPPER RESPIRATORY TRACT INFECTION [None]
  - VERTIGO [None]
